FAERS Safety Report 10706195 (Version 1)
Quarter: 2015Q1

REPORT INFORMATION
  Report Type: Spontaneous
  Country: NL (occurrence: NL)
  Receive Date: 20150113
  Receipt Date: 20150113
  Transmission Date: 20150721
  Serious: Yes (Hospitalization)
  Sender: FDA-Public Use
  Company Number: PHHY2015NL001387

PATIENT
  Age: 7 Year
  Sex: Female

DRUGS (3)
  1. HALOPERIDOL. [Suspect]
     Active Substance: HALOPERIDOL
     Dosage: 0.02 MG/KG, QD (ON DAY 3)
     Route: 065
  2. HALOPERIDOL. [Suspect]
     Active Substance: HALOPERIDOL
     Indication: DELIRIUM
     Dosage: 0.08 MG/KG, QD (ON DAY 1)
     Route: 065
  3. HALOPERIDOL. [Suspect]
     Active Substance: HALOPERIDOL
     Dosage: 0.12 MG/KG, QD (ON DAY 2)
     Route: 065

REACTIONS (3)
  - Depressed level of consciousness [Unknown]
  - Tremor [Unknown]
  - Dystonia [Unknown]
